FAERS Safety Report 4557774-9 (Version None)
Quarter: 2005Q1

REPORT INFORMATION
  Report Type: 
  Country: None (occurrence: None)
  Receive Date: 20050103
  Receipt Date: 20040723
  Transmission Date: 20050727
  Serious: Yes (Other)
  Sender: FDA-Public Use
  Company Number: 2004UW15624

PATIENT
  Age: 79 Year
  Sex: Female

DRUGS (4)
  1. CRESTOR [Suspect]
     Indication: BLOOD CHOLESTEROL INCREASED
     Dosage: 10 MG QD PO
     Route: 048
     Dates: start: 20040601
  2. SYNTHROID [Concomitant]
  3. ASPIRIN [Concomitant]
  4. ANTIBIOTIC [Concomitant]

REACTIONS (2)
  - EMOTIONAL DISTRESS [None]
  - IRRITABILITY [None]
